FAERS Safety Report 8860602 (Version 5)
Quarter: 2013Q1

REPORT INFORMATION
  Report Type: Spontaneous
  Country: MX (occurrence: MX)
  Receive Date: 20121025
  Receipt Date: 20130115
  Transmission Date: 20140127
  Serious: Yes (Other)
  Sender: FDA-Public Use
  Company Number: PHHY2012MX095786

PATIENT
  Age: 47 Year
  Sex: Female

DRUGS (2)
  1. EXFORGE [Suspect]
     Indication: HYPERTENSION
     Dosage: 1 DF (160 MG VALS AND 10 MG AMLO), DAILY
     Route: 048
     Dates: start: 20121015
  2. VALERIANA COMP [Concomitant]
     Indication: SLEEP DISORDER
     Dosage: 1 DF, DAILY
     Dates: start: 201212

REACTIONS (5)
  - Asphyxia [Not Recovered/Not Resolved]
  - Feeling abnormal [Not Recovered/Not Resolved]
  - Anxiety [Recovered/Resolved]
  - Blood pressure increased [Recovered/Resolved]
  - Fatigue [Unknown]
